FAERS Safety Report 8791120 (Version 1)
Quarter: 2012Q4

REPORT INFORMATION
  Report Type: Spontaneous
  Country: US (occurrence: None)
  Receive Date: 20120913
  Receipt Date: 20120913
  Transmission Date: 20130627
  Serious: Yes (Death, Life-Threatening, Hospitalization, Disabling, Other)
  Sender: FDA-Public Use
  Company Number: None

PATIENT
  Age: 63 Year
  Sex: Female
  Weight: 56.7 kg

DRUGS (1)
  1. LISINOPRIL [Suspect]

REACTIONS (7)
  - Nausea [None]
  - Abdominal discomfort [None]
  - Fatigue [None]
  - Abdominal pain upper [None]
  - Asthenia [None]
  - Liver injury [None]
  - Hepatic cancer stage IV [None]
